FAERS Safety Report 5257441-2 (Version None)
Quarter: 2007Q1

REPORT INFORMATION
  Report Type: 
  Country: None (occurrence: None)
  Receive Date: 20070307
  Receipt Date: 20060802
  Transmission Date: 20070707
  Serious: No
  Sender: FDA-Public Use
  Company Number: US-GLAXOSMITHKLINE-A0614679A

PATIENT
  Age: 85 Year
  Sex: Male

DRUGS (9)
  1. REQUIP [Suspect]
     Indication: RESTLESS LEGS SYNDROME
     Route: 048
     Dates: start: 20060717
  2. COUMADIN [Concomitant]
  3. FUROSEMIDE [Concomitant]
  4. POTASSIUM ACETATE [Concomitant]
  5. TOPROL-XL [Concomitant]
  6. UNKNOWN MEDICATION [Concomitant]
  7. DIGOXIN [Concomitant]
  8. CALCIUM [Concomitant]
  9. AVODART [Concomitant]

REACTIONS (1)
  - DRUG INEFFECTIVE [None]
